FAERS Safety Report 13005052 (Version 3)
Quarter: 2017Q1

REPORT INFORMATION
  Report Type: Spontaneous
  Country: US (occurrence: US)
  Receive Date: 20161207
  Receipt Date: 20170113
  Transmission Date: 20170428
  Serious: No
  Sender: FDA-Public Use
  Company Number: US-PFIZER INC-2016559955

PATIENT
  Age: 59 Year
  Sex: Male

DRUGS (14)
  1. GABAPENTIN. [Suspect]
     Active Substance: GABAPENTIN
     Indication: SPINAL OPERATION
     Dosage: 300 MG, 3X/DAY
     Route: 048
     Dates: start: 2015, end: 201609
  2. GABAPENTIN. [Suspect]
     Active Substance: GABAPENTIN
     Indication: BACK PAIN
  3. HYDROCODONE/ACETAMINOPHEN [Suspect]
     Active Substance: ACETAMINOPHEN\HYDROCODONE
     Indication: PAIN IN EXTREMITY
  4. MOBIC [Suspect]
     Active Substance: MELOXICAM
     Dosage: 15 MG, 1X/DAY
  5. GEMFIBROZIL. [Suspect]
     Active Substance: GEMFIBROZIL
     Dosage: UNK, 2X/DAY (600, UNIT UNSPECIFIED)
  6. GABAPENTIN. [Suspect]
     Active Substance: GABAPENTIN
     Indication: NEURALGIA
     Dosage: 300 MG, 3X/DAY
     Route: 048
     Dates: start: 2016
  7. HYDROCODONE/ACETAMINOPHEN [Suspect]
     Active Substance: ACETAMINOPHEN\HYDROCODONE
     Indication: BACK PAIN
     Dosage: 1 DF, 2X/DAY
     Dates: end: 201609
  8. HYDROCODONE [Suspect]
     Active Substance: HYDROCODONE
     Indication: SPINAL OPERATION
     Dosage: UNK
  9. DULOXETINE HCL [Suspect]
     Active Substance: DULOXETINE HYDROCHLORIDE
     Indication: NEURALGIA
     Dosage: UNK, 1X/DAY (30, UNIT UNSPECIFIED)
  10. DULOXETINE HCL [Suspect]
     Active Substance: DULOXETINE HYDROCHLORIDE
     Indication: STRESS
  11. CYCLOBENZAPRINE HCL [Suspect]
     Active Substance: CYCLOBENZAPRINE HYDROCHLORIDE
     Indication: MUSCLE SPASMS
     Dosage: 10 MG, 3X/DAY
  12. LISINOPRIL AND HYDROCHLOROTHIAZIDE [Suspect]
     Active Substance: HYDROCHLOROTHIAZIDE\LISINOPRIL
     Dosage: 1 DF, 1X/DAY
  13. ATENOLOL. [Suspect]
     Active Substance: ATENOLOL
     Dosage: 25 MG, 1X/DAY
  14. AMITRIPTYLINE HCL [Suspect]
     Active Substance: AMITRIPTYLINE
     Dosage: 50 MG, 2X/DAY (50 MG, 2-3, BID)

REACTIONS (2)
  - Drug screen positive [Recovered/Resolved]
  - Product use issue [Not Recovered/Not Resolved]

NARRATIVE: CASE EVENT DATE: 2016
